FAERS Safety Report 18545429 (Version 1)
Quarter: 2020Q4

REPORT INFORMATION
  Report Type: Spontaneous
  Country: US (occurrence: US)
  Receive Date: 20201125
  Receipt Date: 20201125
  Transmission Date: 20210114
  Serious: Yes (Hospitalization)
  Sender: FDA-Public Use
  Company Number: None

PATIENT
  Age: 63 Year
  Sex: Male
  Weight: 112 kg

DRUGS (2)
  1. CARBOPLATIN. [Suspect]
     Active Substance: CARBOPLATIN
     Dates: end: 20201104
  2. TAXOL [Suspect]
     Active Substance: PACLITAXEL
     Dates: end: 20201104

REACTIONS (2)
  - Urinary tract infection [None]
  - Neutropenia [None]

NARRATIVE: CASE EVENT DATE: 20201108
